FAERS Safety Report 11392498 (Version 2)
Quarter: 2015Q4

REPORT INFORMATION
  Report Type: Spontaneous
  Country: US (occurrence: US)
  Receive Date: 20150818
  Receipt Date: 20151013
  Transmission Date: 20160304
  Serious: Yes (Disabling, Other)
  Sender: FDA-Public Use
  Company Number: PHEH2015US015733

PATIENT
  Age: 66 Year
  Sex: Female
  Weight: 74 kg

DRUGS (3)
  1. AFINITOR [Suspect]
     Active Substance: EVEROLIMUS
     Dosage: 5 MG, QD
     Route: 048
     Dates: start: 20150609, end: 20150804
  2. ZITHROMAX [Suspect]
     Active Substance: AZITHROMYCIN DIHYDRATE
     Indication: PNEUMONITIS
     Route: 065
  3. AFINITOR [Suspect]
     Active Substance: EVEROLIMUS
     Indication: BREAST CANCER METASTATIC
     Dosage: 10 MG, QD
     Route: 048
     Dates: start: 201412, end: 20150608

REACTIONS (32)
  - Skin disorder [Unknown]
  - Osteopenia [Unknown]
  - Anaemia [Unknown]
  - Pneumonitis [Recovered/Resolved]
  - Melanosis coli [Unknown]
  - White blood cell count decreased [Unknown]
  - Lymphocyte count decreased [Unknown]
  - Hypercholesterolaemia [Unknown]
  - Red blood cell count decreased [Unknown]
  - Osteomyelitis [Recovered/Resolved]
  - Metastases to liver [Unknown]
  - Bone disorder [Unknown]
  - Dyspnoea [Unknown]
  - Mean cell haemoglobin concentration decreased [Unknown]
  - Bone cancer [Unknown]
  - Hypothyroidism [Unknown]
  - Haematocrit decreased [Unknown]
  - Metastases to lymph nodes [Unknown]
  - Second primary malignancy [Unknown]
  - Carbohydrate antigen 15-3 increased [Unknown]
  - Chondropathy [Unknown]
  - Basophil count decreased [Unknown]
  - Rash [Unknown]
  - Oedema peripheral [Recovering/Resolving]
  - Red cell distribution width increased [Unknown]
  - Pneumonitis [Recovered/Resolved]
  - Stomatitis [Recovered/Resolved]
  - Menopausal symptoms [Unknown]
  - Toothache [Unknown]
  - Erythema nodosum [Recovered/Resolved]
  - Oedema [Recovered/Resolved]
  - Epistaxis [Recovered/Resolved]

NARRATIVE: CASE EVENT DATE: 20150214
